FAERS Safety Report 6044320-6 (Version None)
Quarter: 2009Q1

REPORT INFORMATION
  Report Type: 
  Country: None (occurrence: None)
  Receive Date: 20090120
  Receipt Date: 20090108
  Transmission Date: 20090719
  Serious: Yes (Death)
  Sender: FDA-Public Use
  Company Number: IL-ROCHE-606978

PATIENT
  Sex: Female
  Weight: 60.5 kg

DRUGS (3)
  1. CAPECITABINE [Suspect]
     Indication: BREAST CANCER METASTATIC
     Route: 048
     Dates: start: 20081016
  2. PACLITAXEL [Concomitant]
     Indication: BREAST CANCER METASTATIC
  3. TRASTUZUMAB [Concomitant]
     Indication: BREAST CANCER METASTATIC

REACTIONS (1)
  - DEATH [None]
